FAERS Safety Report 23925920 (Version 2)
Quarter: 2024Q3

REPORT INFORMATION
  Report Type: Spontaneous
  Country: JP (occurrence: JP)
  Receive Date: 20240531
  Receipt Date: 20240708
  Transmission Date: 20241017
  Serious: Yes (Death)
  Sender: EISAI
  Company Number: JP-Eisai-202402384_LEN-RCC_P_1

PATIENT
  Age: 8 Decade
  Sex: Male

DRUGS (2)
  1. LENVIMA [Suspect]
     Active Substance: LENVATINIB
     Indication: Renal cell carcinoma
     Dosage: DOSE AND FREQUENCY UNKNOWN
     Route: 048
     Dates: start: 20240417, end: 20240422
  2. KEYTRUDA [Concomitant]
     Active Substance: PEMBROLIZUMAB
     Indication: Renal cell carcinoma
     Dosage: 1 COURSES
     Route: 041
     Dates: start: 20240417, end: 20240417

REACTIONS (2)
  - Malignant neoplasm progression [Fatal]
  - Aspiration [Fatal]

NARRATIVE: CASE EVENT DATE: 20240423
